FAERS Safety Report 24900639 (Version 1)
Quarter: 2025Q1

REPORT INFORMATION
  Report Type: Spontaneous
  Country: US (occurrence: US)
  Receive Date: 20250129
  Receipt Date: 20250129
  Transmission Date: 20250409
  Serious: Yes (Other)
  Sender: BIOVITRUM
  Company Number: US-BIOVITRUM-2022US06849

PATIENT
  Age: 10 Year
  Sex: Female
  Weight: 36 kg

DRUGS (12)
  1. ANAKINRA [Suspect]
     Active Substance: ANAKINRA
     Indication: Polychondritis
     Route: 058
  2. METHOTREXATE [Suspect]
     Active Substance: METHOTREXATE
     Indication: Polychondritis
     Route: 058
  3. METHOTREXATE [Suspect]
     Active Substance: METHOTREXATE
     Route: 058
  4. ETANERCEPT [Suspect]
     Active Substance: ETANERCEPT
     Indication: Polychondritis
     Route: 058
  5. ETANERCEPT [Suspect]
     Active Substance: ETANERCEPT
  6. INFLIXIMAB [Suspect]
     Active Substance: INFLIXIMAB
     Indication: Polychondritis
  7. PREDNISONE [Suspect]
     Active Substance: PREDNISONE
     Indication: Polychondritis
     Route: 048
  8. PREDNISONE [Suspect]
     Active Substance: PREDNISONE
     Route: 048
  9. PREDNISONE [Suspect]
     Active Substance: PREDNISONE
     Route: 048
  10. METHYLPREDNISOLONE [Suspect]
     Active Substance: METHYLPREDNISOLONE
     Indication: Polychondritis
     Route: 042
  11. METHYLPREDNISOLONE [Suspect]
     Active Substance: METHYLPREDNISOLONE
     Route: 042
  12. HUMAN IMMUNOGLOBULIN G [Suspect]
     Active Substance: HUMAN IMMUNOGLOBULIN G
     Indication: Polychondritis
     Route: 042

REACTIONS (12)
  - Cushing^s syndrome [Recovered/Resolved]
  - Swelling [Recovered/Resolved]
  - Back pain [Recovered/Resolved]
  - Injection site pain [Unknown]
  - Weight increased [Unknown]
  - Off label use [Recovered/Resolved]
  - Pseudo Cushing^s syndrome [Recovered/Resolved]
  - Epidural lipomatosis [Recovered/Resolved]
  - Back pain [Recovered/Resolved]
  - Body mass index increased [Recovered/Resolved]
  - Weight increased [Recovered/Resolved]
  - Epidural lipomatosis [Recovering/Resolving]

NARRATIVE: CASE EVENT DATE: 20100101
